FAERS Safety Report 8953517 (Version 1)
Quarter: 2012Q4

REPORT INFORMATION
  Report Type: 
  Country: GB (occurrence: GB)
  Receive Date: 20121206
  Receipt Date: 20121206
  Transmission Date: 20130627
  Serious: Yes (Hospitalization)
  Sender: FDA-Public Use
  Company Number: GB-ROCHE-1164635

PATIENT
  Age: 40 Year
  Sex: Female

DRUGS (2)
  1. AVASTIN [Suspect]
     Indication: BREAST CANCER METASTATIC
     Route: 042
  2. PACLITAXEL [Concomitant]

REACTIONS (2)
  - Skin necrosis [Not Recovered/Not Resolved]
  - Skin exfoliation [Unknown]
